FAERS Safety Report 4310141-5 (Version None)
Quarter: 2004Q1

REPORT INFORMATION
  Report Type: 
  Country: None (occurrence: None)
  Receive Date: 20040302
  Receipt Date: 20040302
  Transmission Date: 20041129
  Serious: No
  Sender: FDA-Public Use
  Company Number: None

PATIENT

DRUGS (2)
  1. IMITREX [Suspect]
     Indication: MIGRAINE
     Dosage: 25 MG PRN ORAL
     Route: 048
  2. IMITREX [Suspect]
     Dosage: 50MG PRN ORAL
     Route: 048

REACTIONS (1)
  - MEDICATION ERROR [None]
